FAERS Safety Report 5154721-6 (Version None)
Quarter: 2006Q4

REPORT INFORMATION
  Report Type: 
  Country: None (occurrence: None)
  Receive Date: 20061116
  Receipt Date: 20061116
  Transmission Date: 20070319
  Serious: Yes (Hospitalization)
  Sender: FDA-Public Use
  Company Number: None

PATIENT
  Age: 37 Year
  Sex: Female
  Weight: 69 kg

DRUGS (11)
  1. HYDROXYPROGESTERONE CAPROATE [Suspect]
     Indication: PREMATURE BABY
     Dosage: 250 MG 1X PER WEEK, IM
     Route: 030
     Dates: start: 20060816, end: 20061102
  2. BETAMETHASONE [Concomitant]
  3. FENTANYL [Concomitant]
  4. ACETAMINOPHEN [Concomitant]
  5. CALCIUM CARBONATE [Concomitant]
  6. DOCUSATE [Concomitant]
  7. METOCLOPRAMIDE [Concomitant]
  8. RANITIDINE [Concomitant]
  9. MAGNESIUM SULFATE [Concomitant]
  10. . [Concomitant]
  11. . [Concomitant]

REACTIONS (3)
  - DRUG EXPOSURE DURING PREGNANCY [None]
  - DRUG EXPOSURE VIA BREAST MILK [None]
  - PREMATURE LABOUR [None]
